FAERS Safety Report 7843105-5 (Version None)
Quarter: 2011Q4

REPORT INFORMATION
  Report Type: 
  Country: None (occurrence: None)
  Receive Date: 20111025
  Receipt Date: 20111017
  Transmission Date: 20120403
  Serious: No
  Sender: FDA-Public Use
  Company Number: US-PFIZER INC-2011230184

PATIENT
  Sex: Female

DRUGS (6)
  1. LANTUS [Suspect]
     Indication: TYPE 2 DIABETES MELLITUS
     Dosage: 10 U, 1X/DAY
     Route: 058
     Dates: start: 20100301
  2. GLIPIZIDE [Suspect]
     Dosage: UNK
     Dates: start: 20010101
  3. INSULIN GLARGINE [Suspect]
     Indication: TYPE 2 DIABETES MELLITUS
     Dosage: 30 UNITS DAILY
     Dates: start: 20100301
  4. THYROID [Concomitant]
  5. LANTUS [Suspect]
     Dosage: 30 U, 1X/DAY
     Route: 058
  6. MONOPRIL [Concomitant]
     Dosage: UNK

REACTIONS (3)
  - PHOTOSENSITIVITY REACTION [None]
  - FEELING HOT [None]
  - SUNBURN [None]
